FAERS Safety Report 9753883 (Version 1)
Quarter: 2013Q4

REPORT INFORMATION
  Report Type: Spontaneous
  Country: US (occurrence: None)
  Receive Date: 20131211
  Receipt Date: 20131211
  Transmission Date: 20140711
  Serious: Yes (Other)
  Sender: FDA-Public Use
  Company Number: VAL_02818_2013

PATIENT
  Sex: Female

DRUGS (5)
  1. BENAZEPRIL [Suspect]
     Indication: HYPERTENSION
     Dosage: (DF)
     Dates: start: 201308
  2. COZAAR [Suspect]
     Indication: HYPERTENSION
     Dosage: (DF)
     Route: 048
  3. AVAPRO [Suspect]
     Indication: HYPERTENSION
     Dosage: (DF)
  4. LISINOPRIL [Suspect]
     Indication: HYPERTENSION
     Dosage: (DF)
  5. DIOVAN HCT [Suspect]
     Indication: HYPERTENSION
     Dosage: (DF)

REACTIONS (5)
  - Dizziness [None]
  - Cough [None]
  - Hypertension [None]
  - Drug ineffective [None]
  - Product quality issue [None]
